FAERS Safety Report 9045323 (Version 1)
Quarter: 2013Q1

REPORT INFORMATION
  Report Type: Spontaneous
  Country: US (occurrence: US)
  Receive Date: 20130131
  Receipt Date: 20130131
  Transmission Date: 20140127
  Serious: No
  Sender: FDA-Public Use
  Company Number: US-BAYER-2013-006737

PATIENT
  Sex: Female
  Weight: 53 kg

DRUGS (13)
  1. BETASERON [Suspect]
     Indication: MULTIPLE SCLEROSIS
     Dosage: 0.25 MG, QOD
     Route: 058
  2. KLONOPIN [Concomitant]
  3. LYRICA [Concomitant]
  4. ZONISAMIDE [Concomitant]
  5. PROMETHAZINE [Concomitant]
  6. PRILOSEC [Concomitant]
  7. DILTIAZEM [Concomitant]
  8. MECLIZINE [Concomitant]
  9. CRESTOR [Concomitant]
  10. BUTALBITAL [Concomitant]
  11. ASPIRIN BUFFERED [Concomitant]
     Dosage: 325 MG, UNK
  12. PLAVIX [Concomitant]
     Dosage: 300 MG, UNK
  13. EDARBYCLOR [Concomitant]

REACTIONS (1)
  - Depression [Unknown]
